FAERS Safety Report 9601069 (Version 2)
Quarter: 2013Q4

REPORT INFORMATION
  Report Type: Spontaneous
  Country: US (occurrence: US)
  Receive Date: 20131004
  Receipt Date: 20131004
  Transmission Date: 20140711
  Serious: Yes (Other)
  Sender: FDA-Public Use
  Company Number: US-AMGEN-USASP2013037133

PATIENT
  Age: 64 Year
  Sex: Male
  Weight: 83.9 kg

DRUGS (2)
  1. ENBREL [Suspect]
     Indication: PSORIASIS
     Dosage: 50 MG, QWK
     Route: 058
     Dates: start: 20090623
  2. HUMIRA [Suspect]
     Dosage: UNK

REACTIONS (6)
  - Respiratory tract infection [Recovered/Resolved]
  - Arthralgia [Not Recovered/Not Resolved]
  - Amnesia [Not Recovered/Not Resolved]
  - Condition aggravated [Not Recovered/Not Resolved]
  - Skin plaque [Not Recovered/Not Resolved]
  - Sinusitis [Unknown]
